FAERS Safety Report 9240082 (Version 1)
Quarter: 2013Q2

REPORT INFORMATION
  Report Type: Spontaneous
  Country: US (occurrence: None)
  Receive Date: 20130418
  Receipt Date: 20130418
  Transmission Date: 20140414
  Serious: No
  Sender: FDA-Public Use
  Company Number: None

PATIENT
  Age: 83 Year
  Sex: Male
  Weight: 88 kg

DRUGS (2)
  1. TAMSULOSIN [Suspect]
     Indication: BENIGN PROSTATIC HYPERPLASIA
     Dosage: 1 TAB QHS
     Dates: start: 20111211
  2. TAMSULOSIN [Suspect]
     Indication: URINARY TRACT OBSTRUCTION
     Dosage: 1 TAB QHS
     Dates: start: 20111211

REACTIONS (4)
  - Incontinence [None]
  - Abdominal discomfort [None]
  - Product substitution issue [None]
  - Product quality issue [None]
